FAERS Safety Report 12899893 (Version 1)
Quarter: 2016Q4

REPORT INFORMATION
  Report Type: Spontaneous
  Country: PL (occurrence: PL)
  Receive Date: 20161101
  Receipt Date: 20161101
  Transmission Date: 20170207
  Serious: Yes (Other)
  Sender: FDA-Public Use
  Company Number: PL-PFIZER INC-2016498236

PATIENT
  Age: 28 Year
  Sex: Male
  Weight: 116 kg

DRUGS (1)
  1. CYTARABINE. [Suspect]
     Active Substance: CYTARABINE
     Indication: SARCOMA
     Dosage: 3000 MG/M2, CYCLIC, D 1,3,5
     Dates: start: 201512

REACTIONS (3)
  - Staphylococcal bacteraemia [Unknown]
  - Platelet disorder [Unknown]
  - Parophthalmia [Unknown]
